FAERS Safety Report 9681127 (Version 1)
Quarter: 2013Q4

REPORT INFORMATION
  Report Type: Spontaneous
  Country: US (occurrence: None)
  Receive Date: 20131108
  Receipt Date: 20131108
  Transmission Date: 20140711
  Serious: No
  Sender: FDA-Public Use
  Company Number: None

PATIENT
  Age: 33 Year
  Sex: Female
  Weight: 85.28 kg

DRUGS (1)
  1. CIMZIA 200 MG UCB GROUP [Suspect]
     Indication: CROHN^S DISEASE
     Dosage: 400 MG EVERY 4 WEEKS
     Route: 058
     Dates: start: 20131104

REACTIONS (3)
  - Injection site urticaria [None]
  - Injection site erythema [None]
  - Injection site pruritus [None]
